FAERS Safety Report 14868322 (Version 1)
Quarter: 2018Q2

REPORT INFORMATION
  Report Type: Report from Study
  Country: KR (occurrence: KR)
  Receive Date: 20180509
  Receipt Date: 20180509
  Transmission Date: 20180711
  Serious: Yes (Other)
  Sender: FDA-Public Use
  Company Number: KR-ROCHE-2119013

PATIENT
  Sex: Female

DRUGS (5)
  1. TOPOTECAN [Suspect]
     Active Substance: TOPOTECAN HYDROCHLORIDE
     Indication: OVARIAN CANCER RECURRENT
     Dosage: DAY1-5
     Route: 065
  2. PEGYLATED LIPOSOMAL DOXORUBICIN [Suspect]
     Active Substance: DOXORUBICIN
     Indication: OVARIAN CANCER RECURRENT
     Route: 065
  3. PACLITAXEL. [Suspect]
     Active Substance: PACLITAXEL
     Indication: OVARIAN CANCER RECURRENT
     Route: 065
  4. BEVACIZUMAB. [Suspect]
     Active Substance: BEVACIZUMAB
     Indication: OVARIAN CANCER RECURRENT
     Route: 065
  5. TOPOTECAN [Suspect]
     Active Substance: TOPOTECAN HYDROCHLORIDE
     Dosage: DAY: 1,8,15
     Route: 065

REACTIONS (11)
  - Cardiac failure congestive [Unknown]
  - Hypertension [Unknown]
  - Embolism [Unknown]
  - Neutropenia [Unknown]
  - Thrombocytopenia [Unknown]
  - Impaired healing [Unknown]
  - Fistula [Unknown]
  - Haemorrhage [Unknown]
  - Proteinuria [Unknown]
  - Abscess [Unknown]
  - Anaemia [Unknown]
